FAERS Safety Report 9669415 (Version 3)
Quarter: 2014Q1

REPORT INFORMATION
  Report Type: Spontaneous
  Country: US (occurrence: US)
  Receive Date: 20131105
  Receipt Date: 20140103
  Transmission Date: 20141002
  Serious: Yes (Other)
  Sender: FDA-Public Use
  Company Number: US-PFIZER INC-2013310563

PATIENT
  Age: 65 Year
  Sex: Male

DRUGS (1)
  1. CHAPSTICK ORIGINAL [Suspect]
     Indication: LIP DRY
     Dosage: UNK

REACTIONS (4)
  - Diabetes mellitus [Unknown]
  - Hypertension [Unknown]
  - Poor quality drug administered [Unknown]
  - Product quality issue [Unknown]
